FAERS Safety Report 18564209 (Version 1)
Quarter: 2020Q4

REPORT INFORMATION
  Report Type: Spontaneous
  Country: US (occurrence: US)
  Receive Date: 20201130
  Receipt Date: 20201130
  Transmission Date: 20210114
  Serious: No
  Sender: FDA-Public Use
  Company Number: None

PATIENT
  Age: 40 Year
  Sex: Male
  Weight: 74.25 kg

DRUGS (6)
  1. GLATIRAMER ACETATE. [Suspect]
     Active Substance: GLATIRAMER ACETATE
     Indication: MULTIPLE SCLEROSIS
     Dosage: ?          QUANTITY:1 INJECTION(S);OTHER FREQUENCY:3 TIMES PER WEEK;OTHER ROUTE:SUBCUTANEOUS?
     Route: 058
     Dates: start: 20201113, end: 20201116
  2. LEVOCETIRIZIN [Concomitant]
     Active Substance: LEVOCETIRIZINE DIHYDROCHLORIDE
  3. MELATONIN [Concomitant]
     Active Substance: MELATONIN
  4. HYDROXYZINE [Concomitant]
     Active Substance: HYDROXYZINE HYDROCHLORIDE
  5. FAMOTIDINE. [Concomitant]
     Active Substance: FAMOTIDINE
  6. COPAXONE [Concomitant]
     Active Substance: GLATIRAMER ACETATE

REACTIONS (7)
  - Dizziness [None]
  - Fatigue [None]
  - Post procedural complication [None]
  - Nausea [None]
  - Vomiting [None]
  - Myalgia [None]
  - Vision blurred [None]

NARRATIVE: CASE EVENT DATE: 20201116
